FAERS Safety Report 9769206 (Version 3)
Quarter: 2014Q2

REPORT INFORMATION
  Report Type: Spontaneous
  Country: US (occurrence: US)
  Receive Date: 20131218
  Receipt Date: 20140422
  Transmission Date: 20141212
  Serious: Yes (Hospitalization)
  Sender: FDA-Public Use
  Company Number: US-BAYER-2013-154650

PATIENT
  Age: 27 Year
  Sex: Female
  Weight: 113.38 kg

DRUGS (11)
  1. MIRENA [Suspect]
     Indication: CONTRACEPTION
     Dosage: 20 MCG/24HR, CONT
     Route: 015
     Dates: start: 20130328, end: 20130819
  2. MIRENA [Suspect]
     Indication: MENORRHAGIA
  3. PROZAC [Concomitant]
     Indication: DEPRESSION
     Dosage: 40 MG, QD
     Dates: start: 2013
  4. PROZAC [Concomitant]
     Indication: ANXIETY
  5. IBUPROFEN [Concomitant]
     Dosage: 600 MG, UNK
  6. CIPRO [Concomitant]
     Dosage: 500 MG, BID
  7. COLACE [Concomitant]
     Dosage: 100 MG,DAILY AS NEEDED
  8. FLAGYL [Concomitant]
     Dosage: 500 MG, TID
  9. NABUMETONE [Concomitant]
     Dosage: 500 MG, EVERY 12 HOURS
  10. OXYCODONE/APAP [Concomitant]
     Dosage: 5-325 MG EVERY 6 HOURS PRN
  11. ZOFRAN [Concomitant]
     Dosage: 4 MG, EVERY 6 HRS PRN

REACTIONS (5)
  - Uterine perforation [None]
  - Injury [None]
  - Pain [None]
  - Emotional distress [None]
  - Device issue [None]
